FAERS Safety Report 15823917 (Version 1)
Quarter: 2019Q1

REPORT INFORMATION
  Report Type: Spontaneous
  Country: NL (occurrence: NL)
  Receive Date: 20190114
  Receipt Date: 20190114
  Transmission Date: 20190417
  Serious: Yes (Other)
  Sender: FDA-Public Use
  Company Number: NL-ANIPHARMA-2019-NL-000002

PATIENT
  Age: 37 Year
  Sex: Female

DRUGS (5)
  1. BICALUTAMIDE. [Suspect]
     Active Substance: BICALUTAMIDE
     Indication: ANDROGEN THERAPY
     Dosage: UNK
     Route: 048
     Dates: start: 20181003
  2. DOXORUBICIN [Suspect]
     Active Substance: DOXORUBICIN
     Dosage: UNK (6 CYCLES) / DOSE TEXT: UNK (6 CYCLES)
     Route: 065
     Dates: start: 20160502
  3. ZOLADEX [Suspect]
     Active Substance: GOSERELIN ACETATE
     Dosage: UNK
     Route: 058
     Dates: start: 20181003
  4. CISPLATIN. [Suspect]
     Active Substance: CISPLATIN
     Dosage: UNK (6 CYCLES) / DOSE TEXT: UNK (6 CYCLES)
     Route: 065
     Dates: start: 20160502
  5. CYCLOPHOSPHAMIDE. [Suspect]
     Active Substance: CYCLOPHOSPHAMIDE
     Dosage: UNK (6 CYCLES) / DOSE TEXT: UNK (6 CYCLES)
     Route: 065
     Dates: start: 20160502

REACTIONS (1)
  - Malignant neoplasm progression [Unknown]

NARRATIVE: CASE EVENT DATE: 20170613
